FAERS Safety Report 4763913-7 (Version None)
Quarter: 2005Q3

REPORT INFORMATION
  Report Type: 
  Country: None (occurrence: None)
  Receive Date: 20050906
  Receipt Date: 20050822
  Transmission Date: 20060218
  Serious: Yes (Hospitalization)
  Sender: FDA-Public Use
  Company Number: 2005118291

PATIENT
  Age: 46 Year
  Sex: Female
  Weight: 110.2241 kg

DRUGS (11)
  1. BENADRYL [Suspect]
     Indication: RHINORRHOEA
     Dosage: 2 ULTRATABWS EVERY 4 TO 6 HOURS AS NEEDED, ORAL
     Route: 048
     Dates: end: 20050601
  2. PHENYTOIN SODIUM [Concomitant]
  3. PIOGLITAZONE HCL [Concomitant]
  4. METOPROLOL TARTRATE [Concomitant]
  5. THOEPHYLLINE (THEOPHYLLINE) [Concomitant]
  6. INSULIN HUMAN INJECTION, ISOPHANE (INSULIN HUMAN INJECTION, ISOPHANE) [Concomitant]
  7. SERTRALINE HCL [Concomitant]
  8. DIAZEPAM [Concomitant]
  9. VALSARTAN [Concomitant]
  10. INSULIN GLARGINE (INSULIN GLARGINE) [Concomitant]
  11. PROPACET 100 [Concomitant]

REACTIONS (1)
  - ANAPHYLACTIC SHOCK [None]
